FAERS Safety Report 17577905 (Version 7)
Quarter: 2020Q2

REPORT INFORMATION
  Report Type: Report from Study
  Country: PL (occurrence: PL)
  Receive Date: 20200324
  Receipt Date: 20200611
  Transmission Date: 20200713
  Serious: Yes (Disabling)
  Sender: FDA-Public Use
  Company Number: PL-ALLERGAN-2011710US

PATIENT
  Sex: Female
  Weight: 64 kg

DRUGS (3)
  1. OPTILAMID [Concomitant]
     Indication: GLAUCOMA
     Dosage: 1 GTT, BID
     Route: 047
     Dates: start: 20171103
  2. COMBIGAN [Concomitant]
     Active Substance: BRIMONIDINE TARTRATE\TIMOLOL MALEATE
     Indication: GLAUCOMA
     Dosage: 1 GTT, BID
     Route: 047
     Dates: start: 20190104
  3. BIMATOPROST. [Suspect]
     Active Substance: BIMATOPROST
     Indication: OPEN ANGLE GLAUCOMA
     Dosage: UNK

REACTIONS (1)
  - Corneal decompensation [Not Recovered/Not Resolved]

NARRATIVE: CASE EVENT DATE: 20200312
